FAERS Safety Report 12495841 (Version 1)
Quarter: 2016Q2

REPORT INFORMATION
  Report Type: Report from Study
  Country: AU (occurrence: AU)
  Receive Date: 20160624
  Receipt Date: 20160624
  Transmission Date: 20160815
  Serious: Yes (Other)
  Sender: FDA-Public Use
  Company Number: AU-JNJFOC-20160220255

PATIENT
  Sex: Male
  Weight: 78 kg

DRUGS (3)
  1. REMICADE [Suspect]
     Active Substance: INFLIXIMAB
     Indication: COLITIS ULCERATIVE
     Dosage: 100 MG VIAL, QUANTITY 4, DOSING SCHEDULE 4
     Route: 042
     Dates: start: 201511
  2. REMICADE [Suspect]
     Active Substance: INFLIXIMAB
     Indication: COLITIS ULCERATIVE
     Dosage: 100 MG VIAL, QUANTITY 4, DOSING SCHEDULE 8
     Route: 042
  3. REMICADE [Suspect]
     Active Substance: INFLIXIMAB
     Indication: COLITIS ULCERATIVE
     Dosage: 100 MG VIAL, QUANTITY 4, DOSING SCHEDULE 4
     Route: 042

REACTIONS (2)
  - Therapeutic response decreased [Unknown]
  - Respiratory tract infection [Unknown]
